FAERS Safety Report 10434355 (Version 2)
Quarter: 2017Q4

REPORT INFORMATION
  Report Type: Spontaneous
  Country: US (occurrence: US)
  Receive Date: 20140905
  Receipt Date: 20171030
  Transmission Date: 20180320
  Serious: Yes (Hospitalization)
  Sender: FDA-Public Use
  Company Number: US-OTSUKA-US-2014-12691

PATIENT
  Sex: Male
  Weight: 250 kg

DRUGS (1)
  1. ABILIFY MAINTENA [Suspect]
     Active Substance: ARIPIPRAZOLE
     Indication: SCHIZOPHRENIA
     Dosage: UNK UNK, QM
     Route: 030
     Dates: start: 201407

REACTIONS (2)
  - Musculoskeletal stiffness [Unknown]
  - Psychiatric decompensation [Unknown]
